FAERS Safety Report 21598369 (Version 1)
Quarter: 2022Q4

REPORT INFORMATION
  Report Type: Report from Study
  Country: IT (occurrence: IT)
  Receive Date: 20221115
  Receipt Date: 20221115
  Transmission Date: 20230113
  Serious: Yes (Hospitalization, Other)
  Sender: FDA-Public Use
  Company Number: IT-BRISTOL-MYERS SQUIBB COMPANY-2022-135854

PATIENT
  Age: 55 Year
  Sex: Female
  Weight: 42 kg

DRUGS (2)
  1. PACLITAXEL [Suspect]
     Active Substance: PACLITAXEL
     Indication: Adenocarcinoma pancreas
     Route: 042
     Dates: start: 20191001, end: 20191217
  2. PANTOPRAZOLE [Concomitant]
     Active Substance: PANTOPRAZOLE
     Indication: Product used for unknown indication
     Route: 065

REACTIONS (3)
  - Gallbladder rupture [Recovered/Resolved with Sequelae]
  - Liver abscess [Recovering/Resolving]
  - Gallbladder abscess [Recovering/Resolving]

NARRATIVE: CASE EVENT DATE: 20200112
